FAERS Safety Report 17695772 (Version 2)
Quarter: 2020Q4

REPORT INFORMATION
  Report Type: Spontaneous
  Country: US (occurrence: US)
  Receive Date: 20200423
  Receipt Date: 20201118
  Transmission Date: 20210113
  Serious: Yes (Hospitalization, Other)
  Sender: FDA-Public Use
  Company Number: US-NAPPMUNDI-USA-2020-0150135

PATIENT
  Sex: Female

DRUGS (15)
  1. OXYCONTIN [Suspect]
     Active Substance: OXYCODONE HYDROCHLORIDE
     Dosage: 80 MG, QID
     Route: 048
     Dates: start: 2000, end: 2014
  2. SUBOXONE [Suspect]
     Active Substance: BUPRENORPHINE HYDROCHLORIDE\NALOXONE HYDROCHLORIDE
     Indication: PRODUCT USED FOR UNKNOWN INDICATION
     Route: 048
  3. PERCOCET                           /00446701/ [Suspect]
     Active Substance: ACETAMINOPHEN\OXYCODONE HYDROCHLORIDE\OXYCODONE TEREPHTHALATE
     Indication: PAIN
     Dosage: UNK
  4. TRAMADOL. [Suspect]
     Active Substance: TRAMADOL
     Indication: PRODUCT USED FOR UNKNOWN INDICATION
     Dosage: UNK
     Route: 065
  5. OXYCONTIN [Suspect]
     Active Substance: OXYCODONE HYDROCHLORIDE
     Dosage: 2-4 TABLTSX40 MG, DAILY
     Route: 048
     Dates: start: 2000, end: 2014
  6. HYDROMORPHONE TABLET (RHODES) [Suspect]
     Active Substance: HYDROMORPHONE
     Indication: PRODUCT USED FOR UNKNOWN INDICATION
     Dosage: UNK
     Route: 048
  7. HYDROCODONE BITARTRATE AND ACETAMINOPHEN [Suspect]
     Active Substance: ACETAMINOPHEN\HYDROCODONE BITARTRATE
     Indication: PRODUCT USED FOR UNKNOWN INDICATION
     Dosage: UNK
  8. MORPHINE SULFATE EXTENDED-RELEASE TABLETS (RHODES 74-769, 74-862) [Suspect]
     Active Substance: MORPHINE SULFATE
     Indication: PRODUCT USED FOR UNKNOWN INDICATION
     Dosage: UNK
     Route: 048
  9. OXYCODONE HCL CR TABLETS (SIMILAR TO NDA 22-272) [Suspect]
     Active Substance: OXYCODONE HYDROCHLORIDE
     Indication: PAIN
     Dosage: UNK
     Route: 048
  10. OXYCODONE HCL TABLETS (RHODES 91-490) [Suspect]
     Active Substance: OXYCODONE HYDROCHLORIDE
     Indication: PRODUCT USED FOR UNKNOWN INDICATION
     Dosage: UNK
  11. HYDROMORPHONE HCL ORAL SOLUTION (RHODES) [Suspect]
     Active Substance: HYDROMORPHONE HYDROCHLORIDE
     Indication: PRODUCT USED FOR UNKNOWN INDICATION
     Dosage: UNK
     Route: 048
  12. PERCODAN [Suspect]
     Active Substance: ASPIRIN\OXYCODONE HYDROCHLORIDE
     Indication: PAIN
     Dosage: UNK
  13. OXYCONTIN [Suspect]
     Active Substance: OXYCODONE HYDROCHLORIDE
     Indication: PAIN MANAGEMENT
     Dosage: 20 MG, DAILY
     Route: 048
     Dates: start: 1990
  14. OXYCODONE/ ACETAMINOPHEN TABLETS [Suspect]
     Active Substance: ACETAMINOPHEN\OXYCODONE HYDROCHLORIDE
     Indication: PAIN MANAGEMENT
     Dosage: 8 TABLETSX10/325 MG, DAILY
     Route: 048
     Dates: start: 1997, end: 2014
  15. OXYCODONE HYDROCHLORIDE (SIMILAR TO NDA 22-272) [Suspect]
     Active Substance: OXYCODONE HYDROCHLORIDE
     Indication: PAIN MANAGEMENT
     Dosage: 30 MG, Q4H
     Route: 048
     Dates: start: 2000, end: 2014

REACTIONS (26)
  - Depression [Unknown]
  - Nausea [Unknown]
  - Unevaluable event [Unknown]
  - Crying [Unknown]
  - Aggression [Unknown]
  - Hot flush [Unknown]
  - Feeling cold [Unknown]
  - Drug dependence [Not Recovered/Not Resolved]
  - Loss of personal independence in daily activities [Unknown]
  - Anxiety [Unknown]
  - Irritability [Unknown]
  - Therapeutic product effect decreased [Unknown]
  - Loss of libido [Unknown]
  - Feeling guilty [Unknown]
  - Drug tolerance [Unknown]
  - Suicidal ideation [Unknown]
  - Disturbance in attention [Unknown]
  - Formication [Unknown]
  - Insomnia [Unknown]
  - Mental status changes [Unknown]
  - Off label use [Recovered/Resolved]
  - Feeling abnormal [Unknown]
  - Withdrawal syndrome [Unknown]
  - Abnormal behaviour [Unknown]
  - Hyperhidrosis [Unknown]
  - Fatigue [Unknown]

NARRATIVE: CASE EVENT DATE: 2000
